FAERS Safety Report 20801545 (Version 2)
Quarter: 2022Q2

REPORT INFORMATION
  Report Type: Report from Study
  Country: CZ (occurrence: CZ)
  Receive Date: 20220509
  Receipt Date: 20220610
  Transmission Date: 20220721
  Serious: Yes (Death)
  Sender: FDA-Public Use
  Company Number: CZ-ABBVIE-22K-217-4384858-00

PATIENT
  Age: 49 Year
  Sex: Female
  Weight: 52 kg

DRUGS (7)
  1. CARBIDOPA\LEVODOPA [Suspect]
     Active Substance: CARBIDOPA\LEVODOPA
     Indication: Parkinson^s disease
     Dosage: MORNING DOSE 15 ML, CONTINUOUS DOSE 5.8 ML/HOUR, EXCEPTIONAL DOSE 3 ML
     Route: 050
     Dates: start: 20220124
  2. CARBIDOPA\LEVODOPA [Suspect]
     Active Substance: CARBIDOPA\LEVODOPA
  3. BENSERAZIDE HYDROCHLORIDE\LEVODOPA [Concomitant]
     Active Substance: BENSERAZIDE HYDROCHLORIDE\LEVODOPA
     Indication: Akinesia
     Dosage: 1 INTO 1
     Route: 048
     Dates: start: 2020
  4. ESCITALOPRAM [Concomitant]
     Active Substance: ESCITALOPRAM OXALATE
     Indication: Depression
     Dosage: 1 INTO 1
     Route: 048
     Dates: start: 202010
  5. CLOZAPINE [Concomitant]
     Active Substance: CLOZAPINE
     Indication: Psychotic disorder due to a general medical condition
     Dosage: 1 TABLET
     Route: 048
     Dates: start: 202101
  6. FOLIC ACID [Concomitant]
     Active Substance: FOLIC ACID
     Indication: Nervous system disorder prophylaxis
     Dosage: 1 TABLET
     Route: 048
     Dates: start: 20220124
  7. VITAMIN B COMPLEX [Concomitant]
     Active Substance: CYANOCOBALAMIN\DEXPANTHENOL\NIACINAMIDE\PYRIDOXINE HYDROCHLORIDE\RIBOFLAVIN 5^-PHOSPHATE SODIUM\THIA
     Indication: Nervous system disorder prophylaxis
     Dosage: 1 TABLET
     Route: 048
     Dates: start: 20220124

REACTIONS (1)
  - Pulmonary embolism [Fatal]

NARRATIVE: CASE EVENT DATE: 20220101
